FAERS Safety Report 5501729-4 (Version None)
Quarter: 2007Q4

REPORT INFORMATION
  Report Type: 
  Country: None (occurrence: None)
  Receive Date: 20071030
  Receipt Date: 20071017
  Transmission Date: 20080405
  Serious: Yes (Hospitalization, Other)
  Sender: FDA-Public Use
  Company Number: US-AMGEN-QUU245664

PATIENT
  Sex: Female
  Weight: 90.8 kg

DRUGS (6)
  1. ENBREL [Suspect]
     Indication: PSORIATIC ARTHROPATHY
     Route: 058
     Dates: start: 20070628, end: 20070930
  2. ENBREL [Suspect]
     Indication: PUSTULAR PSORIASIS
  3. METHOTREXATE [Concomitant]
     Route: 048
     Dates: start: 20070922
  4. PREDNISONE [Concomitant]
  5. FOSAMAX [Concomitant]
  6. FOLIC ACID [Concomitant]

REACTIONS (10)
  - CHEST PAIN [None]
  - DYSPNOEA [None]
  - HYPERTENSION [None]
  - OEDEMA PERIPHERAL [None]
  - PETECHIAE [None]
  - PRURITUS [None]
  - PUSTULAR PSORIASIS [None]
  - RASH [None]
  - TACHYCARDIA [None]
  - VASCULITIS [None]
